FAERS Safety Report 5263081-1 (Version None)
Quarter: 2007Q1

REPORT INFORMATION
  Report Type: 
  Country: None (occurrence: None)
  Receive Date: 20070312
  Receipt Date: 20070228
  Transmission Date: 20070707
  Serious: Yes (Other)
  Sender: FDA-Public Use
  Company Number: JP-PFIZER INC-2006111524

PATIENT
  Sex: Female

DRUGS (1)
  1. UNASYN [Suspect]
     Route: 042

REACTIONS (1)
  - RENAL FAILURE ACUTE [None]
